FAERS Safety Report 4522313-5 (Version None)
Quarter: 2004Q4

REPORT INFORMATION
  Report Type: 
  Country: None (occurrence: None)
  Receive Date: 20041207
  Receipt Date: 20041124
  Transmission Date: 20050328
  Serious: Yes (Death)
  Sender: FDA-Public Use
  Company Number: A044-002-005324

PATIENT
  Sex: Male

DRUGS (2)
  1. ARICEPT [Suspect]
     Dosage: 5 MG, 1 IN 1 D, ORAL
     Route: 048
     Dates: start: 20041016
  2. WARFARIN (WARFARIN) [Suspect]
     Dosage: 4 MG, ORAL
     Route: 048

REACTIONS (4)
  - CEREBRAL HAEMORRHAGE [None]
  - CIRCULATORY COLLAPSE [None]
  - DRUG INTERACTION [None]
  - HAEMATEMESIS [None]
